FAERS Safety Report 6517884-3 (Version None)
Quarter: 2009Q4

REPORT INFORMATION
  Report Type: 
  Country: None (occurrence: None)
  Receive Date: 20091224
  Receipt Date: 20091218
  Transmission Date: 20100525
  Serious: Yes (Death)
  Sender: FDA-Public Use
  Company Number: JP-SANOFI-AVENTIS-200912763JP

PATIENT

DRUGS (1)
  1. DOCETAXEL [Suspect]
     Route: 041

REACTIONS (1)
  - ACUTE RESPIRATORY DISTRESS SYNDROME [None]
